FAERS Safety Report 15060843 (Version 1)
Quarter: 2018Q2

REPORT INFORMATION
  Report Type: Spontaneous
  Country: JP (occurrence: JP)
  Receive Date: 20180625
  Receipt Date: 20180625
  Transmission Date: 20180711
  Serious: Yes (Other)
  Sender: FDA-Public Use
  Company Number: JP-PFIZER INC-2018253225

PATIENT
  Sex: Female

DRUGS (1)
  1. ZITHROMAC 250MG [Suspect]
     Active Substance: AZITHROMYCIN DIHYDRATE
     Indication: GINGIVAL PAIN
     Dosage: 500 MG, 1X/DAY
     Route: 048

REACTIONS (2)
  - Discomfort [Unknown]
  - Facial paralysis [Unknown]
